FAERS Safety Report 8504337-6 (Version None)
Quarter: 2012Q3

REPORT INFORMATION
  Report Type: 
  Country: None (occurrence: None)
  Receive Date: 20120711
  Receipt Date: 20120706
  Transmission Date: 20120928
  Serious: Yes (Other)
  Sender: FDA-Public Use
  Company Number: PHHY2012US058496

PATIENT
  Age: 64 Year
  Sex: Female

DRUGS (2)
  1. PREDNISONE [Suspect]
     Indication: TOXOPLASMOSIS
     Dosage: 60 MG, DAILY
     Route: 048
  2. BACTRIM [Concomitant]
     Indication: TOXOPLASMOSIS

REACTIONS (6)
  - VISUAL ACUITY REDUCED [None]
  - BLINDNESS [None]
  - RETINAL VASCULAR OCCLUSION [None]
  - SIMPLEX VIRUS TEST POSITIVE [None]
  - NECROTISING RETINITIS [None]
  - VITREOUS HAEMORRHAGE [None]
